FAERS Safety Report 6642436-4 (Version None)
Quarter: 2010Q1

REPORT INFORMATION
  Report Type: 
  Country: None (occurrence: None)
  Receive Date: 20100319
  Receipt Date: 20100312
  Transmission Date: 20100710
  Serious: Yes (Other)
  Sender: FDA-Public Use
  Company Number: SK-PFIZER INC-2009240477

PATIENT
  Sex: Male
  Weight: 3.5 kg

DRUGS (1)
  1. ALPRAZOLAM [Suspect]
     Dosage: 0.25 MG, 1X/DAY
     Route: 064
     Dates: start: 20090608, end: 20090626

REACTIONS (2)
  - DRUG EXPOSURE DURING PREGNANCY [None]
  - KIDNEY ENLARGEMENT [None]
